FAERS Safety Report 5036896-2 (Version None)
Quarter: 2006Q2

REPORT INFORMATION
  Report Type: 
  Country: None (occurrence: None)
  Receive Date: 20060622
  Receipt Date: 20060607
  Transmission Date: 20061013
  Serious: No
  Sender: FDA-Public Use
  Company Number: US200602003838

PATIENT
  Age: 56 Year
  Sex: Male

DRUGS (10)
  1. CYMBALTA [Suspect]
     Dosage: 60 MG,
     Dates: start: 20050201
  2. LOSARTAN POTASSIUM [Concomitant]
  3. TOPROL-XL [Concomitant]
  4. ZESTRIL /USA/ (LISINOPRIL) [Concomitant]
  5. PREVACID [Concomitant]
  6. TRAZODONE HCL [Concomitant]
  7. LASIX [Concomitant]
  8. HYDROCHLOROTHIAZIDE [Concomitant]
  9. ALBUTEROL [Concomitant]
  10. FLOMAX [Concomitant]

REACTIONS (3)
  - ALANINE AMINOTRANSFERASE INCREASED [None]
  - ASPARTATE AMINOTRANSFERASE INCREASED [None]
  - GAMMA-GLUTAMYLTRANSFERASE INCREASED [None]
